FAERS Safety Report 17534559 (Version 1)
Quarter: 2020Q1

REPORT INFORMATION
  Report Type: Spontaneous
  Country: AU (occurrence: AU)
  Receive Date: 20200312
  Receipt Date: 20200312
  Transmission Date: 20200409
  Serious: Yes (Disabling)
  Sender: FDA-Public Use
  Company Number: AU-AMERICAN REGENT INC-20182434

PATIENT
  Sex: Female
  Weight: 70 kg

DRUGS (7)
  1. MALTOFER (IRON POLYMALTOSE) [Suspect]
     Active Substance: IRON POLYMALTOSE
     Indication: IRON DEFICIENCY
     Dosage: 370 MG
     Route: 048
  2. COENZYME Q10 [Concomitant]
     Active Substance: UBIDECARENONE
     Indication: PRODUCT USED FOR UNKNOWN INDICATION
     Dosage: UNKNOWN
     Route: 048
  3. GLUCOSAMINE [Concomitant]
     Active Substance: GLUCOSAMINE
     Indication: PRODUCT USED FOR UNKNOWN INDICATION
     Dosage: 500 MG
     Route: 048
  4. FERINJECT [Suspect]
     Active Substance: FERRIC CARBOXYMALTOSE
     Indication: IRON DEFICIENCY
     Dosage: UNKNOWN
     Route: 042
  5. MIRCERA [Suspect]
     Active Substance: METHOXY POLYETHYLENE GLYCOL-EPOETIN BETA
     Indication: RENAL IMPAIRMENT
     Dosage: 100 MG
     Route: 058
     Dates: start: 201705
  6. CRESTOR [Concomitant]
     Active Substance: ROSUVASTATIN CALCIUM
     Indication: HYPERCHOLESTEROLAEMIA
     Dosage: 5 MG
     Route: 048
  7. MAG-SAP [Concomitant]
     Indication: RENAL IMPAIRMENT
     Dosage: 500 MG
     Route: 048

REACTIONS (3)
  - Hypersomnia [Recovered/Resolved]
  - Physical disability [Recovered/Resolved]
  - Fatigue [Recovered/Resolved]
